FAERS Safety Report 9301704 (Version 6)
Quarter: 2013Q3

REPORT INFORMATION
  Report Type: Spontaneous
  Country: SE (occurrence: SE)
  Receive Date: 20130521
  Receipt Date: 20130705
  Transmission Date: 20140515
  Serious: Yes (Hospitalization, Other)
  Sender: FDA-Public Use
  Company Number: SE-ROCHE-1225945

PATIENT
  Age: 59 Year
  Sex: Female

DRUGS (6)
  1. MABTHERA [Suspect]
     Indication: B-CELL LYMPHOMA
     Route: 065
     Dates: start: 201208, end: 201210
  2. CYKLOFOSFAMID [Concomitant]
     Indication: B-CELL LYMPHOMA
     Route: 065
     Dates: end: 201210
  3. ONCOVIN [Concomitant]
     Indication: B-CELL LYMPHOMA
     Route: 065
     Dates: end: 201210
  4. DOXORUBICIN [Concomitant]
     Indication: B-CELL LYMPHOMA
     Route: 065
     Dates: end: 201210
  5. PREDNISOLONE [Concomitant]
     Indication: B-CELL LYMPHOMA
     Route: 065
     Dates: end: 201210
  6. SIMVASTATINE [Concomitant]
     Indication: LIPASE INCREASED

REACTIONS (7)
  - Skin disorder [Unknown]
  - Staphylococcal infection [Unknown]
  - Skin necrosis [Not Recovered/Not Resolved]
  - Hypogammaglobulinaemia [Not Recovered/Not Resolved]
  - Dermatitis [Not Recovered/Not Resolved]
  - Skin burning sensation [Not Recovered/Not Resolved]
  - Pyrexia [Not Recovered/Not Resolved]
